FAERS Safety Report 6436141-7 (Version None)
Quarter: 2009Q4

REPORT INFORMATION
  Report Type: 
  Country: None (occurrence: None)
  Receive Date: 20091105
  Receipt Date: 20091023
  Transmission Date: 20100525
  Serious: Yes (Hospitalization, Other)
  Sender: FDA-Public Use
  Company Number: THYM-1001249

PATIENT
  Age: 40 Year
  Sex: Female

DRUGS (5)
  1. THYMOGLOBULIN [Suspect]
     Indication: RENAL TRANSPLANT
     Dosage: INTRAVENOUS
     Route: 042
  2. ANTI-THYMOCYTE GLOBULIN NOS [Suspect]
     Indication: RENAL TRANSPLANT
     Dosage: ONCE, INTRAVENOUS
     Route: 042
  3. TACROLIMUS [Suspect]
     Indication: RENAL TRANSPLANT
     Dosage: ONCE, ORAL
     Route: 048
     Dates: start: 20090601
  4. CELLCEPT [Concomitant]
  5. PREDNISOLONE [Concomitant]

REACTIONS (2)
  - KIDNEY TRANSPLANT REJECTION [None]
  - RENAL GRAFT LOSS [None]
